FAERS Safety Report 25244484 (Version 1)
Quarter: 2025Q2

REPORT INFORMATION
  Report Type: Spontaneous
  Country: AR (occurrence: AR)
  Receive Date: 20250428
  Receipt Date: 20250428
  Transmission Date: 20250716
  Serious: Yes (Death, Other)
  Sender: ALKEM
  Company Number: AR-ALKEM LABORATORIES LIMITED-AR-ALKEM-2025-03015

PATIENT
  Age: 5 Year
  Sex: Female

DRUGS (9)
  1. SIROLIMUS [Suspect]
     Active Substance: SIROLIMUS
     Indication: Immunosuppressant drug therapy
     Route: 065
  2. SIROLIMUS [Suspect]
     Active Substance: SIROLIMUS
     Indication: Evans syndrome
  3. SIROLIMUS [Suspect]
     Active Substance: SIROLIMUS
     Indication: Autoimmune hepatitis
  4. RITUXIMAB [Suspect]
     Active Substance: RITUXIMAB
     Indication: Immunosuppressant drug therapy
     Route: 065
  5. RITUXIMAB [Suspect]
     Active Substance: RITUXIMAB
     Indication: Evans syndrome
  6. RITUXIMAB [Suspect]
     Active Substance: RITUXIMAB
     Indication: Autoimmune hepatitis
  7. HUMAN IMMUNOGLOBULIN G [Suspect]
     Active Substance: HUMAN IMMUNOGLOBULIN G
     Indication: Immunosuppressant drug therapy
     Route: 042
  8. HUMAN IMMUNOGLOBULIN G [Suspect]
     Active Substance: HUMAN IMMUNOGLOBULIN G
     Indication: Evans syndrome
  9. HUMAN IMMUNOGLOBULIN G [Suspect]
     Active Substance: HUMAN IMMUNOGLOBULIN G
     Indication: Autoimmune hepatitis

REACTIONS (13)
  - Cerebral toxoplasmosis [Fatal]
  - Toxoplasmosis [Fatal]
  - Eye infection toxoplasmal [Unknown]
  - Lower respiratory tract infection viral [Unknown]
  - Oesophageal candidiasis [Unknown]
  - Encephalitis [Unknown]
  - BK virus infection [Unknown]
  - Otitis media moraxella [Unknown]
  - Impetigo [Unknown]
  - Influenza [Unknown]
  - Human herpesvirus 6 infection reactivation [Unknown]
  - Epstein-Barr virus infection [Unknown]
  - Multiple-drug resistance [Unknown]
